FAERS Safety Report 12479856 (Version 1)
Quarter: 2016Q2

REPORT INFORMATION
  Report Type: Spontaneous
  Country: US (occurrence: US)
  Receive Date: 20160620
  Receipt Date: 20160620
  Transmission Date: 20160815
  Serious: No
  Sender: FDA-Public Use
  Company Number: US-ENDO PHARMACEUTICALS INC.-2016-003270

PATIENT
  Age: 82 Year
  Sex: Male
  Weight: 106.69 kg

DRUGS (6)
  1. LATANOPROST. [Concomitant]
     Active Substance: LATANOPROST
     Indication: CATARACT
  2. AREDS 2 [Concomitant]
     Active Substance: MINERALS\VITAMINS
     Indication: VITAMIN SUPPLEMENTATION
  3. AREDS 2 [Concomitant]
     Active Substance: MINERALS\VITAMINS
     Indication: MACULAR DEGENERATION
  4. QUERCITIN [Concomitant]
     Indication: SENSITIVITY TO WEATHER CHANGE
  5. QUERCITIN [Concomitant]
     Indication: VITAMIN SUPPLEMENTATION
  6. TRIAMCINOLONE ACETONIDE CREAM 0.025 [Suspect]
     Active Substance: TRIAMCINOLONE ACETONIDE
     Indication: RASH
     Route: 061
     Dates: start: 201604

REACTIONS (2)
  - Drug effect delayed [Not Recovered/Not Resolved]
  - Drug effect decreased [Not Recovered/Not Resolved]

NARRATIVE: CASE EVENT DATE: 201604
